FAERS Safety Report 11537388 (Version 3)
Quarter: 2015Q4

REPORT INFORMATION
  Report Type: Spontaneous
  Country: US (occurrence: US)
  Receive Date: 20150922
  Receipt Date: 20151113
  Transmission Date: 20160304
  Serious: No
  Sender: FDA-Public Use
  Company Number: US-PFIZER INC-2015303626

PATIENT
  Age: 81 Year
  Sex: Female
  Weight: 89 kg

DRUGS (1)
  1. PHENYTOIN SODIUM. [Suspect]
     Active Substance: PHENYTOIN SODIUM
     Indication: SEIZURE
     Dosage: 100 MG, (2 IN AM + 2 IN PM)
     Dates: start: 1983

REACTIONS (1)
  - Drug ineffective [Recovered/Resolved]
